FAERS Safety Report 15888174 (Version 3)
Quarter: 2019Q2

REPORT INFORMATION
  Report Type: Spontaneous
  Country: US (occurrence: US)
  Receive Date: 20190130
  Receipt Date: 20190626
  Transmission Date: 20190711
  Serious: Yes (Other)
  Sender: FDA-Public Use
  Company Number: US-ASTRAZENECA-2018SF33821

PATIENT
  Age: 21591 Day
  Sex: Male
  Weight: 108 kg

DRUGS (34)
  1. NEXIUM [Suspect]
     Active Substance: ESOMEPRAZOLE MAGNESIUM
     Indication: GASTROOESOPHAGEAL REFLUX DISEASE
     Route: 048
     Dates: start: 200606, end: 201408
  2. NEXIUM [Suspect]
     Active Substance: ESOMEPRAZOLE MAGNESIUM
     Indication: GASTROOESOPHAGEAL REFLUX DISEASE
     Route: 048
     Dates: start: 2006, end: 2014
  3. NEXIUM [Suspect]
     Active Substance: ESOMEPRAZOLE MAGNESIUM
     Indication: GASTROOESOPHAGEAL REFLUX DISEASE
     Route: 048
     Dates: start: 2019
  4. PANTOPRAZOLE [Suspect]
     Active Substance: PANTOPRAZOLE
     Indication: GASTROOESOPHAGEAL REFLUX DISEASE
     Dosage: GENERIC
     Route: 065
     Dates: start: 1993, end: 2015
  5. SIMVASTATIN. [Concomitant]
     Active Substance: SIMVASTATIN
  6. METOPROLOL. [Concomitant]
     Active Substance: METOPROLOL
  7. SENSIPAR [Concomitant]
     Active Substance: CINACALCET HYDROCHLORIDE
  8. NITROGLYCERINE [Concomitant]
     Active Substance: NITROGLYCERIN
  9. OMEPRAZOLE. [Suspect]
     Active Substance: OMEPRAZOLE
     Dosage: GENERIC
     Route: 065
  10. PREVACID [Suspect]
     Active Substance: LANSOPRAZOLE
     Indication: GASTROOESOPHAGEAL REFLUX DISEASE
     Dosage: GENERIC
     Route: 065
     Dates: start: 1993, end: 2015
  11. CALCITROL [Concomitant]
     Active Substance: CALCITRIOL
  12. SIMVASTATIN. [Concomitant]
     Active Substance: SIMVASTATIN
     Dates: start: 2011, end: 2013
  13. SIMVASTATIN. [Concomitant]
     Active Substance: SIMVASTATIN
  14. HYDROXYCHLOROQUINE [Concomitant]
     Active Substance: HYDROXYCHLOROQUINE
  15. LEVEMIR [Concomitant]
     Active Substance: INSULIN DETEMIR
  16. CALCIUM ACETATE. [Concomitant]
     Active Substance: CALCIUM ACETATE
  17. HYDROXYZINE [Concomitant]
     Active Substance: HYDROXYZINE HYDROCHLORIDE
     Dates: start: 2009, end: 2015
  18. PREVACID [Suspect]
     Active Substance: LANSOPRAZOLE
     Indication: GASTROOESOPHAGEAL REFLUX DISEASE
     Dosage: GENERIC
     Route: 065
     Dates: start: 2014, end: 2015
  19. ASPIRIN. [Concomitant]
     Active Substance: ASPIRIN
  20. NEXIUM 24HR [Suspect]
     Active Substance: ESOMEPRAZOLE MAGNESIUM
     Indication: GASTROOESOPHAGEAL REFLUX DISEASE
     Route: 048
     Dates: start: 1993, end: 2015
  21. TAMSULOSIN [Concomitant]
     Active Substance: TAMSULOSIN
     Indication: URINARY RETENTION
     Dates: start: 2012
  22. BRILINTA [Concomitant]
     Active Substance: TICAGRELOR
  23. NEXIUM [Suspect]
     Active Substance: ESOMEPRAZOLE MAGNESIUM
     Indication: GASTROOESOPHAGEAL REFLUX DISEASE
     Route: 048
     Dates: start: 1993, end: 2015
  24. PREDNISONE. [Concomitant]
     Active Substance: PREDNISONE
  25. ISOSORBIDE. [Concomitant]
     Active Substance: ISOSORBIDE
  26. PREVACID [Suspect]
     Active Substance: LANSOPRAZOLE
     Indication: GASTROOESOPHAGEAL REFLUX DISEASE
     Route: 065
     Dates: start: 1993, end: 2015
  27. HYDROXYCHLOROQUINE [Concomitant]
     Active Substance: HYDROXYCHLOROQUINE
  28. STATIN [Concomitant]
     Active Substance: UNSPECIFIED INGREDIENT
     Dates: start: 2011, end: 2013
  29. ALLOPURINOL. [Concomitant]
     Active Substance: ALLOPURINOL
     Indication: BLOOD URIC ACID DECREASED
     Dates: start: 2009, end: 2015
  30. FINASTERIDE. [Concomitant]
     Active Substance: FINASTERIDE
  31. NOVOLIN [Concomitant]
     Active Substance: INSULIN HUMAN
  32. CARVEDILOL. [Concomitant]
     Active Substance: CARVEDILOL
  33. HUMALOG [Concomitant]
     Active Substance: INSULIN LISPRO
     Dates: start: 2011, end: 2013
  34. HYDROXYCHLOROQUINE [Concomitant]
     Active Substance: HYDROXYCHLOROQUINE
     Indication: IMMUNOSUPPRESSANT DRUG LEVEL
     Dates: start: 2011, end: 2013

REACTIONS (3)
  - Chronic kidney disease [Unknown]
  - Renal failure [Unknown]
  - End stage renal disease [Not Recovered/Not Resolved]

NARRATIVE: CASE EVENT DATE: 20120221
